FAERS Safety Report 5751130-3 (Version None)
Quarter: 2008Q2

REPORT INFORMATION
  Report Type: 
  Country: None (occurrence: None)
  Receive Date: 20080528
  Receipt Date: 20080516
  Transmission Date: 20081010
  Serious: Yes (Other)
  Sender: FDA-Public Use
  Company Number: US-ELI_LILLY_AND_COMPANY-US200805003482

PATIENT
  Sex: Female

DRUGS (6)
  1. EVISTA [Suspect]
     Dosage: 60 MG, UNK
  2. MIACALCIN [Concomitant]
  3. CALCIUM [Concomitant]
  4. VITAMIN D [Concomitant]
  5. VITAMIN E [Concomitant]
  6. ZOLOFT [Concomitant]

REACTIONS (5)
  - LYMPHADENECTOMY [None]
  - PAIN [None]
  - PNEUMONIA [None]
  - SWELLING [None]
  - UTERINE CANCER [None]
